FAERS Safety Report 9366449 (Version 1)
Quarter: 2013Q2

REPORT INFORMATION
  Report Type: Spontaneous
  Country: JP (occurrence: JP)
  Receive Date: 20130625
  Receipt Date: 20130625
  Transmission Date: 20140414
  Serious: Yes (Death, Hospitalization)
  Sender: FDA-Public Use
  Company Number: JP-JNJFOC-20121001910

PATIENT
  Age: 64 Year
  Sex: Male

DRUGS (6)
  1. REMICADE [Suspect]
     Indication: COLITIS ULCERATIVE
     Route: 042
     Dates: start: 201203
  2. REMICADE [Suspect]
     Indication: COLITIS ULCERATIVE
     Dosage: 3RD DOSE
     Route: 042
     Dates: start: 20120426
  3. TACROLIMUS [Suspect]
     Indication: PROPHYLAXIS
     Route: 065
  4. AZANIN [Suspect]
     Indication: COLITIS ULCERATIVE
     Route: 065
     Dates: start: 201003
  5. AZANIN [Suspect]
     Indication: COLITIS ULCERATIVE
     Route: 065
  6. PREDNISOLONE [Suspect]
     Indication: COLITIS ULCERATIVE
     Dosage: DOSE: 20-30 MG
     Route: 048
     Dates: start: 2005

REACTIONS (5)
  - Hepatic failure [Fatal]
  - Hepatic encephalopathy [Unknown]
  - Hepatitis B [Unknown]
  - Bronchopulmonary aspergillosis [Unknown]
  - Renal impairment [Unknown]
